FAERS Safety Report 7310213-7 (Version None)
Quarter: 2011Q1

REPORT INFORMATION
  Report Type: 
  Country: None (occurrence: None)
  Receive Date: 20110224
  Receipt Date: 20110217
  Transmission Date: 20110831
  Serious: Yes (Other)
  Sender: FDA-Public Use
  Company Number: US-PFIZER INC-2011035818

PATIENT
  Sex: Male

DRUGS (4)
  1. LYRICA [Suspect]
     Indication: PAIN MANAGEMENT
     Dosage: UNK
  2. LYRICA [Suspect]
     Indication: GUILLAIN-BARRE SYNDROME
  3. METRONIDAZOLE [Concomitant]
     Dosage: UNK
  4. VANCOMYCIN [Concomitant]
     Dosage: UNK

REACTIONS (1)
  - APLASTIC ANAEMIA [None]
